FAERS Safety Report 7519074-4 (Version None)
Quarter: 2011Q2

REPORT INFORMATION
  Report Type: 
  Country: None (occurrence: None)
  Receive Date: 20110602
  Receipt Date: 20110527
  Transmission Date: 20111010
  Serious: Yes (Other)
  Sender: FDA-Public Use
  Company Number: CA-US-EMD SERONO, INC.-7000946

PATIENT
  Sex: Female
  Weight: 85.806 kg

DRUGS (10)
  1. REBIF [Suspect]
     Indication: MULTIPLE SCLEROSIS
     Route: 058
     Dates: start: 20070105
  2. AMANTADINE HCL [Concomitant]
     Indication: PRODUCT USED FOR UNKNOWN INDICATION
  3. REBIF [Suspect]
     Indication: RELAPSING-REMITTING MULTIPLE SCLEROSIS
     Route: 058
     Dates: start: 20040408, end: 20050110
  4. SYNTHROID [Concomitant]
  5. CIPROLEX [Concomitant]
  6. METHYLPHENID [Concomitant]
  7. LYRICA [Concomitant]
  8. GABAPENTIN [Concomitant]
  9. RATIO FLUOXETINE [Concomitant]
  10. VITAMIN D [Concomitant]

REACTIONS (12)
  - INJECTION SITE HAEMORRHAGE [None]
  - DEPRESSION [None]
  - MUSCLE STRAIN [None]
  - FATIGUE [None]
  - LOSS OF CONSCIOUSNESS [None]
  - INJECTION SITE PAIN [None]
  - FALL [None]
  - PAIN [None]
  - HYPOTONIA [None]
  - TREMOR [None]
  - CONTUSION [None]
  - DIZZINESS [None]
